FAERS Safety Report 5607894-2 (Version None)
Quarter: 2008Q1

REPORT INFORMATION
  Report Type: 
  Country: None (occurrence: None)
  Receive Date: 20080130
  Receipt Date: 20070213
  Transmission Date: 20080703
  Serious: No
  Sender: FDA-Public Use
  Company Number: US-ASTRAZENECA-2007UW00375

PATIENT
  Age: 46 Year
  Sex: Male
  Weight: 61.2 kg

DRUGS (2)
  1. ACCOLATE [Suspect]
     Indication: ASTHMA
     Route: 048
  2. GEOCILLIN [Concomitant]

REACTIONS (3)
  - CHEST DISCOMFORT [None]
  - DYSPNOEA [None]
  - HEADACHE [None]
